FAERS Safety Report 25411010 (Version 1)
Quarter: 2025Q2

REPORT INFORMATION
  Report Type: Spontaneous
  Country: PK (occurrence: PK)
  Receive Date: 20250609
  Receipt Date: 20250609
  Transmission Date: 20250716
  Serious: Yes (Life-Threatening, Hospitalization, Other)
  Sender: AMICI PHARMACEUTICALS
  Company Number: PK-AMICI-2025AMILIT00005

PATIENT
  Age: 37 Year
  Sex: Male

DRUGS (1)
  1. DICLOFENAC [Suspect]
     Active Substance: DICLOFENAC
     Indication: Musculoskeletal pain
     Route: 030

REACTIONS (2)
  - Gas gangrene [Recovered/Resolved]
  - Compartment syndrome [Recovered/Resolved]
